FAERS Safety Report 6841626-5 (Version None)
Quarter: 2010Q3

REPORT INFORMATION
  Report Type: 
  Country: None (occurrence: None)
  Receive Date: 20100714
  Receipt Date: 20070710
  Transmission Date: 20110219
  Serious: No
  Sender: FDA-Public Use
  Company Number: US-PFIZER INC-2007058767

PATIENT
  Sex: Female
  Weight: 36.7 kg

DRUGS (6)
  1. CHANTIX [Suspect]
     Indication: SMOKING CESSATION THERAPY
     Dates: start: 20070101
  2. LEXAPRO [Concomitant]
  3. LORCET-HD [Concomitant]
     Indication: BACK PAIN
  4. METHIMAZOLE [Concomitant]
     Indication: HYPERTHYROIDISM
  5. ADVAIR DISKUS 100/50 [Concomitant]
  6. SALBUTAMOL [Concomitant]

REACTIONS (4)
  - NAUSEA [None]
  - THERAPEUTIC RESPONSE DECREASED [None]
  - TOBACCO USER [None]
  - WEIGHT DECREASED [None]
